FAERS Safety Report 20263634 (Version 2)
Quarter: 2022Q1

REPORT INFORMATION
  Report Type: Spontaneous
  Country: US (occurrence: US)
  Receive Date: 20211231
  Receipt Date: 20220109
  Transmission Date: 20220423
  Serious: No
  Sender: FDA-Public Use
  Company Number: US-SA-SAC20211227001075

PATIENT
  Age: 64 Year
  Sex: Female

DRUGS (11)
  1. DUPIXENT [Suspect]
     Active Substance: DUPILUMAB
     Indication: Asthma
     Dosage: 600 MG, 1X
     Route: 058
     Dates: start: 202112, end: 202112
  2. DUPIXENT [Suspect]
     Active Substance: DUPILUMAB
     Dosage: 300 MG, QOW
     Route: 058
  3. YUPELRI [Concomitant]
     Active Substance: REVEFENACIN
     Dosage: UNK
  4. BROVANA [Concomitant]
     Active Substance: ARFORMOTEROL TARTRATE
     Dosage: UNK
  5. ATENOLOL [Concomitant]
     Active Substance: ATENOLOL
     Dosage: UNK
  6. CLONIDINE [Concomitant]
     Active Substance: CLONIDINE
     Dosage: 0.1 MG, QD
  7. ALBUTEROL SULFATE [Concomitant]
     Active Substance: ALBUTEROL SULFATE
  8. VITAMIN D NOS [Concomitant]
     Active Substance: VITAMIN D NOS
     Dosage: UNK
  9. ESTRADIOL [Concomitant]
     Active Substance: ESTRADIOL
  10. HYDROCHLOROTHIAZIDE [Concomitant]
     Active Substance: HYDROCHLOROTHIAZIDE
     Dosage: UNK
  11. FASENRA [Concomitant]
     Active Substance: BENRALIZUMAB
     Dosage: UNK

REACTIONS (2)
  - Injection site pain [Unknown]
  - Incorrect dose administered [Unknown]

NARRATIVE: CASE EVENT DATE: 20211201
